FAERS Safety Report 4906493-5 (Version None)
Quarter: 2006Q1

REPORT INFORMATION
  Report Type: 
  Country: None (occurrence: None)
  Receive Date: 20060206
  Receipt Date: 20060125
  Transmission Date: 20060701
  Serious: Yes (Other)
  Sender: FDA-Public Use
  Company Number: 2006S1000021

PATIENT
  Sex: Female

DRUGS (1)
  1. ACITRETIN (ACITRETIN) [Suspect]
     Indication: KERATOSIS FOLLICULAR
     Dosage: 10 MG; QD; PO
     Route: 048
     Dates: end: 20050801

REACTIONS (2)
  - DRUG EXPOSURE DURING PREGNANCY [None]
  - PREGNANCY [None]
